FAERS Safety Report 16009137 (Version 2)
Quarter: 2019Q2

REPORT INFORMATION
  Report Type: Report from Study
  Country: None (occurrence: BR)
  Receive Date: 20190224
  Receipt Date: 20190522
  Transmission Date: 20190711
  Serious: Yes (Other)
  Sender: FDA-Public Use
  Company Number: BR-ABBVIE-19K-020-2674837-00

PATIENT
  Sex: Female

DRUGS (1)
  1. HUMIRA [Suspect]
     Active Substance: ADALIMUMAB
     Indication: RHEUMATOID ARTHRITIS
     Route: 058
     Dates: start: 20131102

REACTIONS (8)
  - Pulmonary mass [Unknown]
  - Product administered at inappropriate site [Unknown]
  - Gastrointestinal disorder [Unknown]
  - Hepatic mass [Unknown]
  - Traumatic lung injury [Unknown]
  - Hypersensitivity [Unknown]
  - Asthma [Unknown]
  - Fear of injection [Unknown]
